FAERS Safety Report 7852323-1 (Version None)
Quarter: 2011Q4

REPORT INFORMATION
  Report Type: 
  Country: None (occurrence: None)
  Receive Date: 20111026
  Receipt Date: 20111018
  Transmission Date: 20120403
  Serious: Yes (Hospitalization, Other)
  Sender: FDA-Public Use
  Company Number: US-ASTRAZENECA-2011SE63209

PATIENT
  Sex: Male

DRUGS (5)
  1. CELEBREX [Concomitant]
  2. LORAZEPAM [Concomitant]
  3. VIMOVO [Suspect]
     Route: 048
  4. TRAMADOL HCL [Concomitant]
  5. LYRICA [Concomitant]

REACTIONS (2)
  - BACK DISORDER [None]
  - BACK PAIN [None]
